FAERS Safety Report 5870197-5 (Version None)
Quarter: 2008Q3

REPORT INFORMATION
  Report Type: 
  Country: None (occurrence: None)
  Receive Date: 20080904
  Receipt Date: 20080826
  Transmission Date: 20090109
  Serious: Yes (Hospitalization)
  Sender: FDA-Public Use
  Company Number: DE-JNJFOC-20080805927

PATIENT
  Sex: Male
  Weight: 74 kg

DRUGS (3)
  1. REMICADE [Suspect]
  2. REMICADE [Suspect]
     Indication: CROHN'S DISEASE
  3. PANTOZOL [Concomitant]
     Indication: CROHN'S DISEASE

REACTIONS (1)
  - RENAL COLIC [None]
